FAERS Safety Report 21993175 (Version 1)
Quarter: 2023Q1

REPORT INFORMATION
  Report Type: Spontaneous
  Country: US (occurrence: US)
  Receive Date: 20230215
  Receipt Date: 20230215
  Transmission Date: 20230417
  Serious: Yes (Other)
  Sender: FDA-Public Use
  Company Number: US-CADILA HEALTHCARE LIMITED-US-ZYDUS-088001

PATIENT

DRUGS (2)
  1. CLOBETASOL [Suspect]
     Active Substance: CLOBETASOL
     Indication: Acanthosis nigricans
     Dosage: DIFFUSELY ACROSS HER TORSO AND EXTREMITIES FROM THE PAST 4 MONTHS.
     Route: 061
  2. CLOBETASOL [Suspect]
     Active Substance: CLOBETASOL
     Indication: Lichen planus

REACTIONS (1)
  - Type 2 diabetes mellitus [Recovering/Resolving]
